FAERS Safety Report 12582185 (Version 1)
Quarter: 2016Q3

REPORT INFORMATION
  Report Type: Spontaneous
  Country: US (occurrence: None)
  Receive Date: 20160721
  Receipt Date: 20160721
  Transmission Date: 20161109
  Serious: Yes (Life-Threatening)
  Sender: FDA-Public Use
  Company Number: None

PATIENT
  Age: 74 Year
  Sex: Male
  Weight: 112.5 kg

DRUGS (1)
  1. GABAPENTIN. [Suspect]
     Active Substance: GABAPENTIN
     Indication: PAIN
     Dosage: MG TID PO
     Route: 048
     Dates: start: 20040730, end: 20160708

REACTIONS (6)
  - Depression [None]
  - Intentional self-injury [None]
  - Therapy change [None]
  - Suicidal ideation [None]
  - Therapy cessation [None]
  - Suicide attempt [None]

NARRATIVE: CASE EVENT DATE: 20160708
